FAERS Safety Report 16052768 (Version 1)
Quarter: 2019Q1

REPORT INFORMATION
  Report Type: Spontaneous
  Country: CA (occurrence: CA)
  Receive Date: 20190308
  Receipt Date: 20190308
  Transmission Date: 20190418
  Serious: Yes (Other)
  Sender: FDA-Public Use
  Company Number: CA-PFIZER INC-2019098670

PATIENT
  Sex: Male

DRUGS (4)
  1. DEXTROMETHORPHAN HYDROBROMIDE. [Suspect]
     Active Substance: DEXTROMETHORPHAN HYDROBROMIDE
     Indication: COUGH
     Dosage: 2 DF, UNK
     Route: 048
  2. SERTRALINE [Concomitant]
     Active Substance: SERTRALINE HYDROCHLORIDE
     Dosage: UNK
  3. ADVIL [Suspect]
     Active Substance: IBUPROFEN
     Dosage: 400 MG, UNK
     Route: 048
  4. DIPHENHYDRAMINE HYDROCHLORIDE;PARACETAMOL;PSEUDOEPHEDRINE HYDROCHLORID [Concomitant]
     Dosage: UNK

REACTIONS (2)
  - Tachycardia [Unknown]
  - Panic attack [Unknown]
